FAERS Safety Report 6124230-6 (Version None)
Quarter: 2009Q1

REPORT INFORMATION
  Report Type: 
  Country: None (occurrence: None)
  Receive Date: 20090319
  Receipt Date: 20090309
  Transmission Date: 20090719
  Serious: Yes (Hospitalization)
  Sender: FDA-Public Use
  Company Number: JP-WATSON-2009-01606

PATIENT
  Age: 41 Year
  Sex: Female

DRUGS (3)
  1. HYDROCORTISONE ACETATE [Suspect]
     Indication: OSTEOARTHRITIS
     Dosage: 100 MG, DAILY
     Route: 065
  2. CARBAMAZEPINE [Suspect]
     Indication: NEURALGIA
  3. MECOBALAMIN [Suspect]
     Indication: NEURALGIA

REACTIONS (2)
  - CONDITION AGGRAVATED [None]
  - TOXIC EPIDERMAL NECROLYSIS [None]
